FAERS Safety Report 7531359-4 (Version None)
Quarter: 2011Q2

REPORT INFORMATION
  Report Type: 
  Country: None (occurrence: None)
  Receive Date: 20110608
  Receipt Date: 20110530
  Transmission Date: 20111010
  Serious: Yes (Hospitalization, Other)
  Sender: FDA-Public Use
  Company Number: BE-AMGEN-BELSP2011026505

PATIENT
  Age: 63 Year
  Sex: Female
  Weight: 60 kg

DRUGS (2)
  1. METHOTREXATE [Suspect]
     Indication: RHEUMATOID ARTHRITIS
     Dosage: 15 MG, WEEKLY
     Route: 048
     Dates: start: 19980101
  2. ENBREL [Suspect]
     Indication: RHEUMATOID ARTHRITIS
     Dosage: 50 MG, WEEKLY
     Route: 058
     Dates: start: 20030601, end: 20110207

REACTIONS (11)
  - RENAL IMPAIRMENT [None]
  - RESPIRATORY FAILURE [None]
  - ACUTE HEPATIC FAILURE [None]
  - HYPERTENSION [None]
  - PNEUMONIA [None]
  - HYPOKALAEMIA [None]
  - PSEUDOMYXOMA PERITONEI [None]
  - PLEURAL EFFUSION [None]
  - OVARIAN CANCER [None]
  - GLUCOSE TOLERANCE DECREASED [None]
  - WOUND DRAINAGE [None]
